FAERS Safety Report 24156196 (Version 1)
Quarter: 2024Q3

REPORT INFORMATION
  Report Type: Spontaneous
  Country: GB (occurrence: GB)
  Receive Date: 20240731
  Receipt Date: 20240731
  Transmission Date: 20241017
  Serious: Yes (Other)
  Sender: RANBAXY
  Company Number: GB-MHRA-MED-202407161345500870-CKDTL

PATIENT
  Age: 112 Year
  Sex: Female
  Weight: 64 kg

DRUGS (3)
  1. ATORVASTATIN [Suspect]
     Active Substance: ATORVASTATIN
     Indication: Adverse drug reaction
     Dosage: 20MG OD
     Route: 065
     Dates: start: 20240201, end: 20240320
  2. ABEMACICLIB [Concomitant]
     Active Substance: ABEMACICLIB
     Indication: Adverse drug reaction
     Dosage: UNK
     Route: 065
     Dates: start: 20230401, end: 20240320
  3. LETROZOLE [Concomitant]
     Active Substance: LETROZOLE
     Indication: Adverse drug reaction
     Dosage: UNK
     Route: 065
     Dates: start: 20230401

REACTIONS (1)
  - Hypertransaminasaemia [Recovered/Resolved]

NARRATIVE: CASE EVENT DATE: 20240322
